FAERS Safety Report 20085012 (Version 1)
Quarter: 2021Q4

REPORT INFORMATION
  Report Type: Spontaneous
  Country: US (occurrence: US)
  Receive Date: 20211118
  Receipt Date: 20211118
  Transmission Date: 20220303
  Serious: Yes (Other)
  Sender: FDA-Public Use
  Company Number: US-VELOXIS PHARMACEUTICALS-2021VELUS-000828

PATIENT
  Age: 16 Year
  Sex: Female

DRUGS (1)
  1. TACROLIMUS [Suspect]
     Active Substance: TACROLIMUS
     Indication: Glomerulonephritis membranous
     Dosage: TROUGH 3-8 NG/ML

REACTIONS (3)
  - Glomerulonephritis membranous [Recovered/Resolved]
  - Off label use [Unknown]
  - Product use issue [Unknown]
